FAERS Safety Report 14764908 (Version 2)
Quarter: 2018Q2

REPORT INFORMATION
  Report Type: Spontaneous
  Country: FI (occurrence: FI)
  Receive Date: 20180416
  Receipt Date: 20180618
  Transmission Date: 20180711
  Serious: Yes (Other)
  Sender: FDA-Public Use
  Company Number: FI-TEVA-2018-FI-881213

PATIENT
  Age: 73 Year
  Sex: Female

DRUGS (6)
  1. PROPRAL [Concomitant]
     Dosage: DOSE: 1-4 TABLETS WHEN NEEDED 3 TIMES PER DAY
     Route: 065
     Dates: start: 2010, end: 2017
  2. BISOPROLOL [Suspect]
     Active Substance: BISOPROLOL
     Indication: ATRIAL FIBRILLATION
     Dosage: DOSE: 0.5-1 TABLET, USED APPROXIMATELY HALF TABLET TWICE A WEEK
     Route: 065
     Dates: start: 20170324
  3. MAREVAN [Concomitant]
     Active Substance: WARFARIN SODIUM
     Dosage: ON THURSDAYS
     Route: 065
     Dates: start: 2009
  4. MULTAQ [Suspect]
     Active Substance: DRONEDARONE
     Indication: ATRIAL FIBRILLATION
     Dosage: 800 MILLIGRAM DAILY;
     Route: 065
     Dates: start: 201007
  5. MAREVAN [Concomitant]
     Active Substance: WARFARIN SODIUM
     Indication: ATRIAL FIBRILLATION
     Dosage: 4.5 MILLIGRAM DAILY; 1.5 TABLET PER DAY, EXCEPT THURSDAYS
     Route: 065
     Dates: start: 2009
  6. PRIMASPAN [Concomitant]
     Active Substance: ASPIRIN
     Indication: ATRIAL FIBRILLATION
     Dosage: STARTED LONG BEFORE WARFARIN SODIUM WAS INITIATED
     Route: 065
     Dates: end: 2009

REACTIONS (4)
  - Arrhythmia [Not Recovered/Not Resolved]
  - Heart rate decreased [Not Recovered/Not Resolved]
  - Hypotension [Not Recovered/Not Resolved]
  - Drug ineffective [Unknown]

NARRATIVE: CASE EVENT DATE: 2016
